FAERS Safety Report 10072002 (Version 1)
Quarter: 2014Q2

REPORT INFORMATION
  Report Type: Spontaneous
  Country: US (occurrence: None)
  Receive Date: 20140409
  Receipt Date: 20140409
  Transmission Date: 20141212
  Serious: Yes (Death, Other)
  Sender: FDA-Public Use
  Company Number: SYM-2014-19369

PATIENT
  Age: 53 Year
  Sex: Female

DRUGS (1)
  1. XENAZINE (12.5 MILLIGRAM, TABLET) (TETRABENAZINE) [Suspect]
     Indication: DYSKINESIA
     Dosage: NOON
     Route: 048
     Dates: start: 20140310, end: 20140328

REACTIONS (1)
  - Death [None]
